FAERS Safety Report 8287571-2 (Version None)
Quarter: 2012Q2

REPORT INFORMATION
  Report Type: 
  Country: None (occurrence: None)
  Receive Date: 20120416
  Receipt Date: 20120405
  Transmission Date: 20120825
  Serious: Yes (Hospitalization)
  Sender: FDA-Public Use
  Company Number: PHHY2010CA78960

PATIENT
  Sex: Female

DRUGS (5)
  1. NORVASC [Concomitant]
     Dosage: 5 MG, UNK
  2. ANTIHYPERTENSIVE DRUGS [Concomitant]
  3. SANDOSTATIN LAR [Suspect]
     Indication: NEUROENDOCRINE TUMOUR
     Dosage: 30 MG, QMO
     Route: 030
     Dates: start: 20101022
  4. ATACAND [Concomitant]
     Dosage: 16 MG, UNK
  5. ATACAND [Concomitant]
     Dosage: 12.5 MG, QD
     Route: 048

REACTIONS (5)
  - DIZZINESS [None]
  - ANXIETY [None]
  - BALANCE DISORDER [None]
  - BLOOD PRESSURE DIASTOLIC INCREASED [None]
  - LABILE HYPERTENSION [None]
